FAERS Safety Report 5518549-7 (Version None)
Quarter: 2007Q4

REPORT INFORMATION
  Report Type: 
  Country: None (occurrence: None)
  Receive Date: 20071115
  Receipt Date: 20071105
  Transmission Date: 20080405
  Serious: Yes (Other)
  Sender: FDA-Public Use
  Company Number: US-PFIZER INC-2007093037

PATIENT
  Age: 9 Year
  Sex: Male

DRUGS (1)
  1. LIPITOR [Suspect]
     Dates: start: 20071104, end: 20071104

REACTIONS (2)
  - ACCIDENTAL EXPOSURE [None]
  - NO ADVERSE REACTION [None]
